FAERS Safety Report 23826865 (Version 1)
Quarter: 2024Q2

REPORT INFORMATION
  Report Type: Spontaneous
  Country: SE (occurrence: None)
  Receive Date: 20240507
  Receipt Date: 20240507
  Transmission Date: 20240716
  Serious: Yes (Hospitalization)
  Sender: FDA-Public Use
  Company Number: 2024A107156

PATIENT
  Age: 18 Year
  Sex: Female

DRUGS (2)
  1. QUETIAPINE [Suspect]
     Active Substance: QUETIAPINE
  2. ABILIFY [Suspect]
     Active Substance: ARIPIPRAZOLE

REACTIONS (8)
  - Myoglobin blood increased [Recovered/Resolved]
  - Toxicity to various agents [Recovering/Resolving]
  - Depressed level of consciousness [Recovering/Resolving]
  - Cardiac disorder [Unknown]
  - Body temperature increased [Unknown]
  - Intentional overdose [Recovering/Resolving]
  - Suicide attempt [Recovering/Resolving]
  - Electrocardiogram QT prolonged [Recovered/Resolved]

NARRATIVE: CASE EVENT DATE: 20240326
